FAERS Safety Report 11976136 (Version 2)
Quarter: 2016Q1

REPORT INFORMATION
  Report Type: Report from Study
  Country: CA (occurrence: CA)
  Receive Date: 20160129
  Receipt Date: 20160314
  Transmission Date: 20160526
  Serious: Yes (Death, Hospitalization)
  Sender: FDA-Public Use
  Company Number: CA-AMGEN-CANNI2016010316

PATIENT
  Age: 61 Year
  Sex: Male
  Weight: 54.42 kg

DRUGS (3)
  1. DEXAMETHASONE. [Concomitant]
     Active Substance: DEXAMETHASONE
     Dosage: 20 MG, QWK
     Route: 048
     Dates: start: 20151013, end: 20151127
  2. CARFILZOMIB [Suspect]
     Active Substance: CARFILZOMIB
     Indication: PLASMA CELL MYELOMA
     Dosage: 27 MG/M2, UNK
     Route: 042
     Dates: start: 20151013, end: 20151127
  3. CYCLOPHOSPHAMIDE. [Concomitant]
     Active Substance: CYCLOPHOSPHAMIDE
     Dosage: 350 MG, QWK
     Route: 048
     Dates: start: 20151013, end: 20151127

REACTIONS (2)
  - Haemorrhage intracranial [Fatal]
  - Sepsis [Fatal]

NARRATIVE: CASE EVENT DATE: 20151130
